FAERS Safety Report 26159928 (Version 1)
Quarter: 2025Q4

REPORT INFORMATION
  Report Type: Spontaneous
  Country: JP (occurrence: JP)
  Receive Date: 20251216
  Receipt Date: 20251216
  Transmission Date: 20260118
  Serious: Yes (Hospitalization, Other)
  Sender: PHARMOBEDIENT CONSULTING, LLC
  Company Number: JP-Pharmobedient-000645

PATIENT
  Age: 46 Year
  Sex: Female

DRUGS (2)
  1. ZONISAMIDE [Suspect]
     Active Substance: ZONISAMIDE
     Indication: Product used for unknown indication
     Dosage: FOR 2 MONTH
  2. ZONISAMIDE [Suspect]
     Active Substance: ZONISAMIDE
     Indication: Subarachnoid haemorrhage
     Dosage: 2ND COURSE AFTER WASHOUT PERIOD OF 4 MONTHS

REACTIONS (2)
  - Drug reaction with eosinophilia and systemic symptoms [Unknown]
  - Eosinophilic pneumonia [Recovering/Resolving]
